FAERS Safety Report 17203217 (Version 4)
Quarter: 2020Q1

REPORT INFORMATION
  Report Type: Spontaneous
  Country: CA (occurrence: CA)
  Receive Date: 20191226
  Receipt Date: 20200213
  Transmission Date: 20200409
  Serious: Yes (Other)
  Sender: FDA-Public Use
  Company Number: CA-PFIZER INC-2019556535

PATIENT
  Age: 69 Year
  Sex: Female

DRUGS (22)
  1. PSEUDOEPHEDRINE-CHLORPHENIRAMINE [Suspect]
     Active Substance: CHLORPHENIRAMINE MALEATE\PSEUDOEPHEDRINE HYDROCHLORIDE
  2. ZOPICLONE [Suspect]
     Active Substance: ZOPICLONE
     Dosage: 5 MG, 1X/DAY
  3. CELEBREX [Suspect]
     Active Substance: CELECOXIB
     Dosage: UNK
  4. ALVESCO [Suspect]
     Active Substance: CICLESONIDE
     Dosage: 300 UG, 2X/DAY
     Route: 065
  5. FLUTICASONE PROPIONATE/SALMETEROL XINAFOATE [Suspect]
     Active Substance: FLUTICASONE PROPIONATE\SALMETEROL XINAFOATE
     Dosage: UNK, 2X/DAY
     Route: 055
  6. SPIRIVA [Suspect]
     Active Substance: TIOTROPIUM BROMIDE MONOHYDRATE
     Dosage: 2.5 UG, 1X/DAY
     Route: 055
  7. HYDROXYZINE HCL [Suspect]
     Active Substance: HYDROXYZINE HYDROCHLORIDE
  8. DAXAS [Suspect]
     Active Substance: ROFLUMILAST
     Dosage: 100 UG, 1X/DAY
     Route: 055
  9. IMODIUM [Suspect]
     Active Substance: LOPERAMIDE HYDROCHLORIDE
  10. CALCIUM CARBONATE. [Suspect]
     Active Substance: CALCIUM CARBONATE
     Dosage: UNK
     Route: 065
  11. OMALIZUMAB. [Suspect]
     Active Substance: OMALIZUMAB
     Dosage: 225 MG, 2X/WEEK
     Route: 065
  12. PANTOPRAZOLE [Suspect]
     Active Substance: PANTOPRAZOLE
     Dosage: 40 MG, 1X/DAY
     Route: 065
  13. AZITHROMYCIN ANHYDROUS. [Suspect]
     Active Substance: AZITHROMYCIN ANHYDROUS
     Dosage: 250 MG, 1X/DAY
  14. ALVESCO [Suspect]
     Active Substance: CICLESONIDE
     Dosage: 200 UG, 2X/DAY
     Route: 065
  15. PREDNISONE. [Suspect]
     Active Substance: PREDNISONE
     Dosage: UNK
  16. SINGULAIR [Suspect]
     Active Substance: MONTELUKAST SODIUM
     Dosage: 10 MG, 1X/DAY
  17. VENTOLINE [SALBUTAMOL] [Suspect]
     Active Substance: ALBUTEROL SULFATE
     Dosage: UNK
  18. DAXAS [Suspect]
     Active Substance: ROFLUMILAST
     Indication: PSEUDOMONAS INFECTION
     Dosage: 500 UG, 1X/DAY
     Route: 055
  19. OMALIZUMAB. [Suspect]
     Active Substance: OMALIZUMAB
     Dosage: UNK
     Route: 065
  20. VENTOLINE [SALBUTAMOL] [Suspect]
     Active Substance: ALBUTEROL SULFATE
     Dosage: UNK
     Route: 055
  21. BENRALIZUMAB. [Suspect]
     Active Substance: BENRALIZUMAB
     Indication: ASTHMA
     Dosage: UNK
     Route: 042
     Dates: start: 201810
  22. VITAMIN D NOS [Suspect]
     Active Substance: VITAMIN D NOS

REACTIONS (19)
  - Bacterial disease carrier [Unknown]
  - Rales [Unknown]
  - Fall [Unknown]
  - Wheezing [Unknown]
  - Drug ineffective [Unknown]
  - Therapeutic product effect incomplete [Unknown]
  - Bronchial wall thickening [Unknown]
  - Cough [Unknown]
  - Intervertebral disc protrusion [Unknown]
  - Asthma [Unknown]
  - Bronchial secretion retention [Unknown]
  - Sputum discoloured [Unknown]
  - Blood count abnormal [Unknown]
  - Obstructive airways disorder [Unknown]
  - Upper limb fracture [Unknown]
  - Dyspnoea [Unknown]
  - Spinal cord compression [Unknown]
  - Wrist fracture [Unknown]
  - Malaise [Unknown]
